FAERS Safety Report 12188684 (Version 1)
Quarter: 2016Q1

REPORT INFORMATION
  Report Type: Spontaneous
  Country: CA (occurrence: CA)
  Receive Date: 20160317
  Receipt Date: 20160317
  Transmission Date: 20160526
  Serious: Yes (Hospitalization)
  Sender: FDA-Public Use
  Company Number: CA-WATSON-2016-05861

PATIENT
  Age: 68 Year
  Sex: Female

DRUGS (1)
  1. CAPTOPRIL (UNKNOWN) [Suspect]
     Active Substance: CAPTOPRIL
     Indication: PRODUCT USED FOR UNKNOWN INDICATION
     Dosage: UNK
     Route: 065

REACTIONS (2)
  - Hypersensitivity [Recovered/Resolved]
  - Renal disorder [Recovered/Resolved]
